FAERS Safety Report 6516741-6 (Version None)
Quarter: 2009Q4

REPORT INFORMATION
  Report Type: 
  Country: None (occurrence: None)
  Receive Date: 20091223
  Receipt Date: 20091221
  Transmission Date: 20100525
  Serious: Yes (Other)
  Sender: FDA-Public Use
  Company Number: CHPA2009US23292

PATIENT
  Age: 60 Year
  Sex: Female
  Weight: 81.633 kg

DRUGS (1)
  1. EX-LAX MAX STR LAX PILLS SENNA (NCH) [Suspect]
     Indication: CONSTIPATION
     Dosage: 2 DF, QD
     Route: 048
     Dates: start: 20070101

REACTIONS (5)
  - BODY HEIGHT DECREASED [None]
  - DRUG DEPENDENCE [None]
  - INTENTIONAL DRUG MISUSE [None]
  - THERAPEUTIC RESPONSE UNEXPECTED [None]
  - WEIGHT DECREASED [None]
